FAERS Safety Report 24677742 (Version 1)
Quarter: 2024Q4

REPORT INFORMATION
  Report Type: Spontaneous
  Country: US (occurrence: US)
  Receive Date: 20241129
  Receipt Date: 20241129
  Transmission Date: 20250115
  Serious: No
  Sender: CSL BEHRING
  Company Number: US-BEH-2024186046

PATIENT
  Sex: Female
  Weight: 46.259 kg

DRUGS (32)
  1. HIZENTRA [Suspect]
     Active Substance: HUMAN IMMUNOGLOBULIN G
     Indication: Combined immunodeficiency
     Dosage: 10 G, QW(PRODUCT STRENGHT: 10 GRAM PRE-FILLED SYRINGE)
     Route: 058
     Dates: start: 20220318
  2. ALBUTEROL [Concomitant]
     Active Substance: ALBUTEROL
  3. AZELASTINE [Concomitant]
     Active Substance: AZELASTINE
  4. ASPIRIN [Concomitant]
     Active Substance: ASPIRIN
  5. BUDESONIDE [Concomitant]
     Active Substance: BUDESONIDE
  6. CALCIUM\VITAMIN D [Concomitant]
     Active Substance: CALCIUM\VITAMIN D
  7. VITAMIN K [Concomitant]
     Active Substance: PHYTONADIONE
  8. COENZYME Q10 [Concomitant]
     Active Substance: DIETARY SUPPLEMENT\UBIDECARENONE
  9. CROMOLYN SODIUM [Concomitant]
     Active Substance: CROMOLYN SODIUM
  10. UNSPECIFIED INGREDIENT [Concomitant]
     Active Substance: UNSPECIFIED INGREDIENT
  11. DOXYCYCLINE [Concomitant]
     Active Substance: DOXYCYCLINE
  12. FEXOFENADINE [Concomitant]
     Active Substance: FEXOFENADINE HYDROCHLORIDE
  13. FLOVENT [Concomitant]
     Active Substance: FLUTICASONE PROPIONATE
  14. HYDROXYZINE [Concomitant]
     Active Substance: HYDROXYZINE HYDROCHLORIDE
  15. KEPPRA [Concomitant]
     Active Substance: LEVETIRACETAM
  16. KETOTIFEN [Concomitant]
     Active Substance: KETOTIFEN
  17. LAMICTAL [Concomitant]
     Active Substance: LAMOTRIGINE
  18. LINZESS [Concomitant]
     Active Substance: LINACLOTIDE
  19. MAGNESIUM [Concomitant]
     Active Substance: MAGNESIUM
  20. MIRALAX [Concomitant]
     Active Substance: POLYETHYLENE GLYCOL 3350
  21. MONTELUKAST [Concomitant]
     Active Substance: MONTELUKAST
  22. MOTEGRITY [Concomitant]
     Active Substance: PRUCALOPRIDE SUCCINATE
  23. NALTREXONE [Concomitant]
     Active Substance: NALTREXONE
  24. PEPCID AC [Concomitant]
     Active Substance: FAMOTIDINE
  25. RESTASIS [Concomitant]
     Active Substance: CYCLOSPORINE
  26. SALINE [Concomitant]
     Active Substance: SODIUM CHLORIDE
  27. TIROSINT [Concomitant]
     Active Substance: LEVOTHYROXINE SODIUM
  28. VITAMIN C [Concomitant]
     Active Substance: ASCORBIC ACID
  29. XELJANZ [Concomitant]
     Active Substance: TOFACITINIB CITRATE
  30. XOLAIR [Concomitant]
     Active Substance: OMALIZUMAB
  31. ZINC [Concomitant]
     Active Substance: ZINC
  32. Atrantil [Concomitant]

REACTIONS (4)
  - Infusion site pain [Unknown]
  - Infusion site pruritus [Unknown]
  - Infusion site swelling [Unknown]
  - Headache [Unknown]
